FAERS Safety Report 4800781-9 (Version None)
Quarter: 2005Q4

REPORT INFORMATION
  Report Type: 
  Country: None (occurrence: None)
  Receive Date: 20051017
  Receipt Date: 20051004
  Transmission Date: 20060501
  Serious: Yes (Disabling)
  Sender: FDA-Public Use
  Company Number: US-MERCK-0510USA02546

PATIENT
  Sex: Female
  Weight: 82 kg

DRUGS (4)
  1. VIOXX [Suspect]
     Indication: JOINT STIFFNESS
     Route: 065
     Dates: start: 20020101, end: 20030101
  2. VIOXX [Suspect]
     Indication: ARTHRITIS
     Route: 065
     Dates: start: 20020101, end: 20030101
  3. IBUPROFEN [Concomitant]
     Route: 065
  4. [THERAPY UNSPECIFIED] [Concomitant]
     Indication: ASTHMA
     Route: 065

REACTIONS (3)
  - CHRONIC OBSTRUCTIVE PULMONARY DISEASE [None]
  - DEPRESSION [None]
  - MYOCARDIAL INFARCTION [None]
